FAERS Safety Report 9522300 (Version 2)
Quarter: 2013Q4

REPORT INFORMATION
  Report Type: Spontaneous
  Country: JP (occurrence: JP)
  Receive Date: 20130913
  Receipt Date: 20131029
  Transmission Date: 20140711
  Serious: Yes (Other)
  Sender: FDA-Public Use
  Company Number: PHHY2013JP101539

PATIENT
  Sex: 0

DRUGS (2)
  1. TEGRETOL [Suspect]
     Route: 048
  2. DEPAKENE [Concomitant]
     Route: 048

REACTIONS (2)
  - Epilepsy [Unknown]
  - Drug effect decreased [Unknown]
